FAERS Safety Report 9516050 (Version 1)
Quarter: 2013Q3

REPORT INFORMATION
  Report Type: Spontaneous
  Country: CA (occurrence: None)
  Receive Date: 20130909
  Receipt Date: 20130909
  Transmission Date: 20140515
  Serious: Yes (Hospitalization)
  Sender: FDA-Public Use
  Company Number: CA-009036

PATIENT
  Age: 77 Year
  Sex: Male

DRUGS (1)
  1. FIRMAGON /01764801/ (FIRMAGON) 80 MG (NOT SPECIFIED) [Suspect]
     Indication: PROSTATE CANCER
     Dosage: LOADING DOSE ADMINISTERED, DATE, DOSE, FORM AND ROUTE NOT PROVIDED

REACTIONS (6)
  - Dizziness [None]
  - Pyrexia [None]
  - Nausea [None]
  - Hyperhidrosis [None]
  - Balance disorder [None]
  - Fall [None]
